FAERS Safety Report 5940076-3 (Version None)
Quarter: 2008Q4

REPORT INFORMATION
  Report Type: 
  Country: None (occurrence: None)
  Receive Date: 20081104
  Receipt Date: 20081028
  Transmission Date: 20090506
  Serious: Yes (Other)
  Sender: FDA-Public Use
  Company Number: PHEH2008US09792

PATIENT

DRUGS (1)
  1. EXFORGE [Suspect]

REACTIONS (2)
  - HEPATIC ENZYME INCREASED [None]
  - PANCREATIC CARCINOMA [None]
